FAERS Safety Report 16893080 (Version 1)
Quarter: 2019Q4

REPORT INFORMATION
  Report Type: Spontaneous
  Country: IT (occurrence: IT)
  Receive Date: 20191008
  Receipt Date: 20191008
  Transmission Date: 20200122
  Serious: Yes (Hospitalization)
  Sender: FDA-Public Use
  Company Number: IT-TEVA-2019-IT-1117370

PATIENT
  Age: 49 Year
  Sex: Female

DRUGS (2)
  1. CLOMIPRAMINE HYDROCHLORIDE. [Suspect]
     Active Substance: CLOMIPRAMINE HYDROCHLORIDE
     Route: 048
  2. ALPRAZOLAM. [Suspect]
     Active Substance: ALPRAZOLAM
     Dosage: 9 MG
     Route: 048

REACTIONS (2)
  - Loss of consciousness [Unknown]
  - Substance abuse [Unknown]

NARRATIVE: CASE EVENT DATE: 20190328
